FAERS Safety Report 18280899 (Version 1)
Quarter: 2020Q3

REPORT INFORMATION
  Report Type: Spontaneous
  Country: US (occurrence: US)
  Receive Date: 20200918
  Receipt Date: 20200918
  Transmission Date: 20201103
  Serious: Yes (Hospitalization, Other)
  Sender: FDA-Public Use
  Company Number: US-CIPLA LTD.-2020US06528

PATIENT

DRUGS (1)
  1. WARFARIN [Suspect]
     Active Substance: WARFARIN
     Indication: ANTICOAGULANT THERAPY
     Dosage: UNK
     Route: 065
     Dates: start: 2018

REACTIONS (4)
  - Gastritis [Unknown]
  - Haemorrhage [Not Recovered/Not Resolved]
  - Skin necrosis [Not Recovered/Not Resolved]
  - International normalised ratio fluctuation [Unknown]

NARRATIVE: CASE EVENT DATE: 2018
